FAERS Safety Report 5935002-7 (Version None)
Quarter: 2008Q4

REPORT INFORMATION
  Report Type: 
  Country: None (occurrence: None)
  Receive Date: 20081029
  Receipt Date: 20081029
  Transmission Date: 20090506
  Serious: Yes (Death)
  Sender: FDA-Public Use
  Company Number: None

PATIENT
  Age: 29 Year
  Sex: Male
  Weight: 63 kg

DRUGS (1)
  1. ERBITUX [Suspect]
     Indication: COLON CANCER
     Dosage: 680MG ONCE IV
     Route: 042
     Dates: start: 20071208

REACTIONS (3)
  - NO THERAPEUTIC RESPONSE [None]
  - PULSE ABSENT [None]
  - RESPIRATORY ARREST [None]
